FAERS Safety Report 6475685-9 (Version None)
Quarter: 2009Q4

REPORT INFORMATION
  Report Type: 
  Country: None (occurrence: None)
  Receive Date: 20091204
  Receipt Date: 20091130
  Transmission Date: 20100525
  Serious: Yes (Hospitalization, Other)
  Sender: FDA-Public Use
  Company Number: DE-TEVA-212339ISR

PATIENT
  Sex: Female

DRUGS (2)
  1. COPAXONE [Suspect]
     Indication: MULTIPLE SCLEROSIS
     Route: 058
     Dates: start: 20090929, end: 20091014
  2. COPAXONE [Suspect]
     Route: 058
     Dates: start: 20091016

REACTIONS (3)
  - CHOLELITHIASIS [None]
  - HYPERTHYROIDISM [None]
  - TOXIC NODULAR GOITRE [None]
